FAERS Safety Report 15151239 (Version 1)
Quarter: 2018Q3

REPORT INFORMATION
  Report Type: Spontaneous
  Country: FR (occurrence: FR)
  Receive Date: 20180716
  Receipt Date: 20180716
  Transmission Date: 20181010
  Serious: Yes (Hospitalization)
  Sender: FDA-Public Use
  Company Number: FR-BAUSCH-BL-2018-019226

PATIENT
  Age: 90 Year
  Sex: Female

DRUGS (2)
  1. XENAZINE [Suspect]
     Active Substance: TETRABENAZINE
     Indication: CHOREA
     Route: 048
  2. XENAZINE [Suspect]
     Active Substance: TETRABENAZINE
     Dosage: DOSE REDUCED
     Route: 048

REACTIONS (4)
  - Dyskinesia [Recovered/Resolved]
  - Altered state of consciousness [Recovered/Resolved]
  - Salivary hypersecretion [Recovered/Resolved]
  - Mutism [Recovered/Resolved]

NARRATIVE: CASE EVENT DATE: 20180618
